FAERS Safety Report 8387583 (Version 5)
Quarter: 2012Q4

REPORT INFORMATION
  Report Type: 
  Country: US (occurrence: US)
  Receive Date: 20120202
  Receipt Date: 20121106
  Transmission Date: 20130627
  Serious: Yes (Hospitalization, Other)
  Sender: FDA-Public Use
  Company Number: US-009507513-1202USA00214

PATIENT

DRUGS (3)
  1. FOSAMAX [Suspect]
     Dosage: 70 mg, UNK
     Dates: start: 20080322, end: 20100118
  2. FOSAMAX [Suspect]
     Indication: OSTEOPOROSIS
     Dosage: 70 mg, qw
     Route: 048
     Dates: start: 199907, end: 201003
  3. FOSAMAX [Suspect]
     Indication: OSTEOPENIA

REACTIONS (34)
  - Femur fracture [Recovered/Resolved]
  - Arthralgia [Unknown]
  - Gastrooesophageal reflux disease [Unknown]
  - Joint swelling [Unknown]
  - Osteoarthritis [Unknown]
  - Plantar fasciitis [Unknown]
  - Breast discharge [Unknown]
  - Arthropathy [Unknown]
  - Spondylolisthesis [Unknown]
  - Basal cell carcinoma [Unknown]
  - Migraine [Unknown]
  - Urinary tract infection [Unknown]
  - Groin pain [Unknown]
  - Scoliosis [Unknown]
  - Rotator cuff syndrome [Recovered/Resolved]
  - Cholelithiasis [Unknown]
  - Hepatic cyst [Unknown]
  - Renal cyst [Unknown]
  - Open reduction of fracture [Unknown]
  - Lumbar spinal stenosis [Unknown]
  - Spinal osteoarthritis [Unknown]
  - Intermittent claudication [Unknown]
  - Fibromyalgia [Unknown]
  - Packed red blood cell transfusion [Unknown]
  - Adverse drug reaction [Unknown]
  - Diarrhoea [Recovered/Resolved]
  - Diverticulum [Unknown]
  - Haemorrhoids [Unknown]
  - Cough [Unknown]
  - Renal disorder [Unknown]
  - Aortic arteriosclerosis [Unknown]
  - Gastrooesophageal reflux disease [Unknown]
  - Depression [Unknown]
  - Osteoarthritis [Unknown]
